FAERS Safety Report 17760334 (Version 1)
Quarter: 2020Q2

REPORT INFORMATION
  Report Type: Spontaneous
  Country: US (occurrence: US)
  Receive Date: 20200507
  Receipt Date: 20200507
  Transmission Date: 20200714
  Serious: Yes (Death)
  Sender: FDA-Public Use
  Company Number: None

PATIENT
  Age: 55 Year
  Sex: Male

DRUGS (3)
  1. CARVEDILOL. [Concomitant]
     Active Substance: CARVEDILOL
  2. CILOSTAZOLE [Concomitant]
     Active Substance: CILOSTAZOL
  3. METOPROLOL SUCCINATE 25MG [Suspect]
     Active Substance: METOPROLOL SUCCINATE
     Indication: CORONARY ANGIOPLASTY
     Route: 048

REACTIONS (1)
  - Death [None]

NARRATIVE: CASE EVENT DATE: 20200417
